FAERS Safety Report 7912572-0 (Version None)
Quarter: 2011Q4

REPORT INFORMATION
  Report Type: 
  Country: None (occurrence: None)
  Receive Date: 20111114
  Receipt Date: 20111104
  Transmission Date: 20120403
  Serious: Yes (Hospitalization)
  Sender: FDA-Public Use
  Company Number: DE-TEVA-307982GER

PATIENT
  Age: 41 Year
  Sex: Male

DRUGS (8)
  1. RISPERIDONE [Suspect]
     Route: 048
     Dates: start: 20090301
  2. CARBAMAZEPINE [Suspect]
     Route: 048
     Dates: start: 20090301
  3. LORAZEPAM [Suspect]
     Route: 048
     Dates: start: 20100601
  4. THIORIDAZINE HCL [Suspect]
     Route: 048
     Dates: start: 20071101
  5. AKINETON [Suspect]
     Route: 048
     Dates: start: 20050401
  6. CEFUROXIME [Concomitant]
     Indication: BRONCHITIS
     Route: 048
     Dates: start: 20110208
  7. TAXILAN [Suspect]
     Route: 048
     Dates: start: 20100901
  8. LAMOTRIGINE [Suspect]
     Route: 048
     Dates: start: 20100601

REACTIONS (3)
  - ACUTE HEPATIC FAILURE [None]
  - THROMBOCYTOPENIA [None]
  - RENAL FAILURE ACUTE [None]
